FAERS Safety Report 18199677 (Version 2)
Quarter: 2020Q3

REPORT INFORMATION
  Report Type: Spontaneous
  Country: US (occurrence: US)
  Receive Date: 20200826
  Receipt Date: 20200828
  Transmission Date: 20201103
  Serious: No
  Sender: FDA-Public Use
  Company Number: US-PFIZER INC-2020328941

PATIENT
  Age: 65 Year
  Sex: Male

DRUGS (1)
  1. ADVIL [Suspect]
     Active Substance: IBUPROFEN
     Indication: CANCER PAIN
     Dosage: UNK
     Route: 061

REACTIONS (3)
  - Product use issue [Unknown]
  - Product use in unapproved indication [Unknown]
  - Drug ineffective for unapproved indication [Not Recovered/Not Resolved]
